FAERS Safety Report 7828767-0 (Version None)
Quarter: 2011Q4

REPORT INFORMATION
  Report Type: 
  Country: None (occurrence: None)
  Receive Date: 20111020
  Receipt Date: 20110125
  Transmission Date: 20120403
  Serious: No
  Sender: FDA-Public Use
  Company Number: US-MYLANLABS-2011S1001949

PATIENT
  Age: 76 Year
  Sex: Male

DRUGS (2)
  1. CARVEDILOL [Suspect]
     Indication: BLOOD PRESSURE INCREASED
     Route: 048
     Dates: start: 20090101, end: 20110101
  2. ATACAND HCT [Concomitant]

REACTIONS (3)
  - COUGH [None]
  - RESPIRATORY DISORDER [None]
  - INCREASED UPPER AIRWAY SECRETION [None]
